FAERS Safety Report 17769374 (Version 1)
Quarter: 2020Q2

REPORT INFORMATION
  Report Type: Spontaneous
  Country: DE (occurrence: DE)
  Receive Date: 20200512
  Receipt Date: 20200512
  Transmission Date: 20200714
  Serious: Yes (Death, Hospitalization)
  Sender: FDA-Public Use
  Company Number: DE-ACCORD-181290

PATIENT
  Age: 85 Year
  Sex: Male

DRUGS (15)
  1. APIDRA [Suspect]
     Active Substance: INSULIN GLULISINE
     Indication: PRODUCT USED FOR UNKNOWN INDICATION
     Dosage: ACCORDING TO THE SCHEME
     Route: 058
  2. TORASEMIDE/TORASEMIDE SODIUM [Suspect]
     Active Substance: TORSEMIDE
     Indication: PRODUCT USED FOR UNKNOWN INDICATION
     Dosage: 20 MG, 1-1-0-0
  3. SALBUTAMOL [Concomitant]
     Active Substance: ALBUTEROL
     Dosage: AS REQUIRED
  4. PREDNISOLONE. [Concomitant]
     Active Substance: PREDNISOLONE
     Dosage: 20 MG, 1-0-0-0
  5. RAMIPRIL. [Suspect]
     Active Substance: RAMIPRIL
     Indication: PRODUCT USED FOR UNKNOWN INDICATION
     Dosage: 2.5 MG, 1-0-0-0
  6. ZOPICLONE [Concomitant]
     Active Substance: ZOPICLONE
     Dosage: 7.5 MG, AS REQUIRED
  7. PANTOPRAZOLE [Concomitant]
     Active Substance: PANTOPRAZOLE
     Dosage: 40 MG, 1-0-0-0
  8. MARCUMAR [Concomitant]
     Active Substance: PHENPROCOUMON
     Dosage: ACCORDING TO INR
  9. TOUJEO [Suspect]
     Active Substance: INSULIN GLARGINE
     Indication: PRODUCT USED FOR UNKNOWN INDICATION
     Dosage: 0-0-46-0
  10. FORMATRIS [Concomitant]
     Active Substance: FORMOTEROL FUMARATE
     Dosage: AS REQUIRED
  11. MELPERONE/MELPERONE HYDROCHLORIDE [Concomitant]
     Active Substance: MELPERONE
     Dosage: 25 MG, 1-0-0-2
  12. DAXAS [Concomitant]
     Active Substance: ROFLUMILAST
     Dosage: 1-0-0-0
  13. BUFORI EASYHALER [Concomitant]
     Active Substance: BUDESONIDE\FORMOTEROL FUMARATE
     Dosage: 2-0-2-0
     Route: 055
  14. CAPROS [Concomitant]
     Dosage: 10 MG, 1-0-0-0
  15. ULTIBRO BREEZHALER [Concomitant]
     Active Substance: GLYCOPYRRONIUM\INDACATEROL
     Dosage: 1-0-0-0
     Route: 055

REACTIONS (10)
  - Somnolence [Unknown]
  - Localised infection [Unknown]
  - Tachycardia [Unknown]
  - Cold sweat [Unknown]
  - General physical health deterioration [Unknown]
  - Oedema peripheral [Unknown]
  - Pain [Unknown]
  - Hypoglycaemia [Unknown]
  - Chest pain [Unknown]
  - Hypotension [Unknown]
